FAERS Safety Report 25214943 (Version 1)
Quarter: 2025Q2

REPORT INFORMATION
  Report Type: Spontaneous
  Country: GB (occurrence: GB)
  Receive Date: 20250418
  Receipt Date: 20250418
  Transmission Date: 20250716
  Serious: Yes (Other)
  Sender: PFIZER
  Company Number: GB-009507513-2275721

PATIENT
  Age: 65 Year
  Sex: Female

DRUGS (2)
  1. INLYTA [Suspect]
     Active Substance: AXITINIB
     Indication: Metastatic renal cell carcinoma
     Dosage: 5 MG, 1X/DAY
     Route: 048
     Dates: start: 202405
  2. KEYTRUDA [Suspect]
     Active Substance: PEMBROLIZUMAB
     Indication: Metastatic renal cell carcinoma
     Route: 042
     Dates: start: 202405

REACTIONS (2)
  - Pemphigoid [Unknown]
  - Off label use [Unknown]

NARRATIVE: CASE EVENT DATE: 20240501
